FAERS Safety Report 26071563 (Version 1)
Quarter: 2025Q4

REPORT INFORMATION
  Report Type: Spontaneous
  Country: US (occurrence: US)
  Receive Date: 20251120
  Receipt Date: 20251120
  Transmission Date: 20260117
  Serious: Yes (Death, Hospitalization, Other)
  Sender: AMGEN
  Company Number: US-AMGEN-USASP2025225767

PATIENT
  Age: 63 Year
  Sex: Male

DRUGS (9)
  1. PREDNISONE [Suspect]
     Active Substance: PREDNISONE
     Indication: Chronic obstructive pulmonary disease
     Dosage: UNK
     Route: 065
  2. PREDNISONE [Suspect]
     Active Substance: PREDNISONE
     Indication: Lung transplant
  3. AZATHIOPRINE [Concomitant]
     Active Substance: AZATHIOPRINE
     Indication: Chronic obstructive pulmonary disease
  4. AZATHIOPRINE [Concomitant]
     Active Substance: AZATHIOPRINE
     Indication: Lung transplant
  5. TACROLIMUS [Concomitant]
     Active Substance: TACROLIMUS
     Indication: Chronic obstructive pulmonary disease
  6. TACROLIMUS [Concomitant]
     Active Substance: TACROLIMUS
     Indication: Lung transplant
     Dosage: DOSE REDUCED
  7. LEFLUNOMIDE [Concomitant]
     Active Substance: LEFLUNOMIDE
     Dosage: 20 MILLIGRAM, QD
  8. LEFLUNOMIDE [Concomitant]
     Active Substance: LEFLUNOMIDE
     Dosage: 40 MILLIGRAM, QD
  9. LEFLUNOMIDE [Concomitant]
     Active Substance: LEFLUNOMIDE
     Dosage: 60 MILLIGRAM, QD

REACTIONS (5)
  - Death [Fatal]
  - Prostate cancer metastatic [Unknown]
  - Transitional cell carcinoma [Unknown]
  - Encephalopathy [Unknown]
  - Polyomavirus-associated nephropathy [Unknown]
